FAERS Safety Report 24369358 (Version 1)
Quarter: 2024Q3

REPORT INFORMATION
  Report Type: Spontaneous
  Country: RO (occurrence: RO)
  Receive Date: 20240927
  Receipt Date: 20240927
  Transmission Date: 20241016
  Serious: Yes (Other)
  Sender: AUROBINDO
  Company Number: RO-AUROBINDO-AUR-APL-2024-046668

PATIENT
  Age: 32 Year
  Sex: Female

DRUGS (8)
  1. LEVETIRACETAM [Suspect]
     Active Substance: LEVETIRACETAM
     Indication: Seizure
     Dosage: 1750 MILLIGRAM, ONCE A DAY
     Route: 065
  2. LEVETIRACETAM [Suspect]
     Active Substance: LEVETIRACETAM
     Dosage: 2000 MILLIGRAM, ONCE A DAY
     Route: 065
  3. LAMOTRIGINE [Suspect]
     Active Substance: LAMOTRIGINE
     Indication: Seizure
     Dosage: 37.5 MILLIGRAM, ONCE A DAY
     Route: 065
  4. LAMOTRIGINE [Suspect]
     Active Substance: LAMOTRIGINE
     Dosage: 150 MILLIGRAM, ONCE A DAY
     Route: 065
  5. CLONAZEPAM [Suspect]
     Active Substance: CLONAZEPAM
     Indication: Seizure
     Dosage: 0.5 MILLIGRAM
     Route: 065
  6. MYCOPHENOLATE MOFETIL [Suspect]
     Active Substance: MYCOPHENOLATE MOFETIL
     Indication: Seizure
     Dosage: 1000 MILLIGRAM, ONCE A DAY
     Route: 065
  7. VINPOCETINE [Suspect]
     Active Substance: VINPOCETINE
     Indication: Seizure
     Dosage: 30 MILLIGRAM, ONCE A DAY
     Route: 065
  8. SOLU-MEDROL [Suspect]
     Active Substance: METHYLPREDNISOLONE SODIUM SUCCINATE
     Indication: Seizure
     Dosage: 1 GRAM, ONCE A DAY
     Route: 042

REACTIONS (1)
  - Drug ineffective [Unknown]
